FAERS Safety Report 20534508 (Version 1)
Quarter: 2022Q1

REPORT INFORMATION
  Report Type: Spontaneous
  Country: US (occurrence: US)
  Receive Date: 20220302
  Receipt Date: 20220302
  Transmission Date: 20220423
  Serious: No
  Sender: FDA-Public Use
  Company Number: US-RECORDATI-2022000345

PATIENT

DRUGS (1)
  1. ISTURISA [Suspect]
     Active Substance: OSILODROSTAT PHOSPHATE
     Indication: Pituitary-dependent Cushing^s syndrome
     Dosage: UNK
     Route: 048
     Dates: start: 2021

REACTIONS (6)
  - Muscular weakness [Unknown]
  - Erythema [Unknown]
  - Flushing [Unknown]
  - Nausea [Unknown]
  - Dizziness postural [Unknown]
  - Product administration interrupted [Recovered/Resolved]
